FAERS Safety Report 6654646-0 (Version None)
Quarter: 2010Q1

REPORT INFORMATION
  Report Type: 
  Country: None (occurrence: None)
  Receive Date: 20100326
  Receipt Date: 20100318
  Transmission Date: 20100710
  Serious: Yes (Hospitalization, Other)
  Sender: FDA-Public Use
  Company Number: US-AMGEN-QUU400605

PATIENT
  Sex: Female

DRUGS (1)
  1. NPLATE [Suspect]
     Indication: IDIOPATHIC THROMBOCYTOPENIC PURPURA

REACTIONS (8)
  - ARTHRALGIA [None]
  - BRONCHITIS [None]
  - DRUG INEFFECTIVE [None]
  - HYPERCOAGULATION [None]
  - HYPERKALAEMIA [None]
  - LEUKOCYTOSIS [None]
  - PAIN IN EXTREMITY [None]
  - THROMBOSIS [None]
